FAERS Safety Report 21359570 (Version 1)
Quarter: 2022Q3

REPORT INFORMATION
  Report Type: Spontaneous
  Country: US (occurrence: None)
  Receive Date: 20220921
  Receipt Date: 20220921
  Transmission Date: 20221026
  Serious: Yes (Life-Threatening)
  Sender: FDA-Public Use
  Company Number: None

PATIENT
  Age: 73 Year
  Sex: Female
  Weight: 76.5 kg

DRUGS (15)
  1. REPATHA [Suspect]
     Active Substance: EVOLOCUMAB
     Indication: Hypercholesterolaemia
     Dosage: FREQUENCY : EVERY OTHER WEEK;?
     Route: 058
     Dates: start: 20220729, end: 20220826
  2. LISINOPRIL [Concomitant]
     Active Substance: LISINOPRIL
  3. HYDROCHLOROTHIAZIDE [Concomitant]
     Active Substance: HYDROCHLOROTHIAZIDE
  4. CLONIDINE [Concomitant]
     Active Substance: CLONIDINE
  5. Estrace cream [Concomitant]
  6. TRIAMCINOLONE [Concomitant]
     Active Substance: TRIAMCINOLONE
  7. LORATADINE [Concomitant]
     Active Substance: LORATADINE
  8. FLUTICASONE [Concomitant]
     Active Substance: FLUTICASONE
  9. VITAMINS [Concomitant]
     Active Substance: VITAMINS
  10. VITAMIN D [Concomitant]
     Active Substance: VITAMIN D NOS
  11. CALCIUM [Concomitant]
     Active Substance: CALCIUM
  12. VITAMIN D3 [Concomitant]
     Active Substance: CHOLECALCIFEROL
  13. OMEGA 3 [Concomitant]
     Active Substance: CAPSAICIN
  14. TYLENOL [Concomitant]
     Active Substance: ACETAMINOPHEN
  15. OMEPRAZOLE [Concomitant]
     Active Substance: OMEPRAZOLE

REACTIONS (1)
  - Hypotension [None]

NARRATIVE: CASE EVENT DATE: 20220902
